FAERS Safety Report 15563536 (Version 2)
Quarter: 2019Q1

REPORT INFORMATION
  Report Type: Spontaneous
  Country: US (occurrence: US)
  Receive Date: 20181029
  Receipt Date: 20190121
  Transmission Date: 20190417
  Serious: Yes (Other)
  Sender: FDA-Public Use
  Company Number: US-SUPERNUS PHARMACEUTICALS, INC.-2018SUP00301

PATIENT
  Sex: Female
  Weight: 74.83 kg

DRUGS (7)
  1. PROPRANOLOL [Concomitant]
     Active Substance: PROPRANOLOL HYDROCHLORIDE
     Dosage: 20 MG, 2X/DAY
  2. PRIMIDONE. [Concomitant]
     Active Substance: PRIMIDONE
     Dosage: 50 MG, 2X/DAY
     Dates: start: 2018
  3. PROZAC [Concomitant]
     Active Substance: FLUOXETINE HYDROCHLORIDE
     Dosage: 10 MG, 1X/DAY IN THE MORNING
  4. TROKENDI XR [Suspect]
     Active Substance: TOPIRAMATE
     Indication: TREMOR
     Dosage: 50 MG, 1X/DAY IN THE EVENING
     Route: 048
     Dates: start: 2018, end: 201810
  5. TROKENDI XR [Suspect]
     Active Substance: TOPIRAMATE
     Indication: ESSENTIAL TREMOR
     Dosage: 25 MG, 1X/DAY IN THE EVENING
     Route: 048
     Dates: start: 2018, end: 20190107
  6. PROZAC [Concomitant]
     Active Substance: FLUOXETINE HYDROCHLORIDE
     Dosage: 20 MG, 1X/DAY IN THE MORNING
  7. INDERAL [Concomitant]
     Active Substance: PROPRANOLOL HYDROCHLORIDE
     Dosage: 15 MG 2 TO 3 TIMES A DAY

REACTIONS (13)
  - Sensory disturbance [Recovering/Resolving]
  - Deja vu [Recovering/Resolving]
  - Headache [Recovering/Resolving]
  - Hallucinations, mixed [Recovering/Resolving]
  - Parosmia [Recovering/Resolving]
  - Abnormal dreams [Recovering/Resolving]
  - Tremor [Recovering/Resolving]
  - Off label use [Recovered/Resolved]
  - Alopecia [Recovering/Resolving]
  - Feeling abnormal [Recovering/Resolving]
  - Dizziness [Recovering/Resolving]
  - Aura [Recovering/Resolving]
  - Depression [Recovering/Resolving]

NARRATIVE: CASE EVENT DATE: 2018
